FAERS Safety Report 7417229-0 (Version None)
Quarter: 2011Q2

REPORT INFORMATION
  Report Type: 
  Country: None (occurrence: None)
  Receive Date: 20110415
  Receipt Date: 20110411
  Transmission Date: 20111010
  Serious: Yes (Other)
  Sender: FDA-Public Use
  Company Number: US-TYCO HEALTHCARE/MALLINCKRODT-T201100685

PATIENT
  Sex: Male

DRUGS (7)
  1. ZOLOFT [Concomitant]
     Indication: DEPRESSION
     Dosage: 75 MG, QD
  2. LISINOPRIL [Concomitant]
     Indication: HYPERTENSION
     Dosage: 20 MG, QD
  3. EXALGO [Suspect]
     Dosage: 24 MG, QD
     Dates: start: 20110324
  4. ANTI-ANXIETY [Concomitant]
     Indication: ANXIETY
     Dosage: UNK
  5. SIMVASTATIN [Concomitant]
     Indication: BLOOD CHOLESTEROL INCREASED
     Dosage: 60 MG, UNK
  6. EXALGO [Suspect]
     Indication: PAIN
     Dosage: 16 MG, QD
     Dates: start: 20110321, end: 20110323
  7. OXYCODONE HYDROCHLORIDE [Suspect]
     Indication: PAIN
     Dosage: 20 MG, Q 4 HOURS PRN
     Dates: start: 20101001, end: 20110321

REACTIONS (3)
  - DRUG INEFFECTIVE [None]
  - WITHDRAWAL SYNDROME [None]
  - BACK PAIN [None]
